FAERS Safety Report 5752956-2 (Version None)
Quarter: 2008Q2

REPORT INFORMATION
  Report Type: 
  Country: None (occurrence: None)
  Receive Date: 20080527
  Receipt Date: 20080519
  Transmission Date: 20081010
  Serious: Yes (Hospitalization)
  Sender: FDA-Public Use
  Company Number: MEDI-0006795

PATIENT
  Age: 9 Month
  Sex: Male

DRUGS (11)
  1. SYNAGIS [Suspect]
     Dates: start: 20071001, end: 20071001
  2. SYNAGIS [Suspect]
     Dates: start: 20071101, end: 20071101
  3. SYNAGIS [Suspect]
     Dates: start: 20071201, end: 20071201
  4. SYNAGIS [Suspect]
     Dates: start: 20080101, end: 20080101
  5. SYNAGIS [Suspect]
     Dates: start: 20080201, end: 20080201
  6. SYNAGIS [Suspect]
     Dates: start: 20080301, end: 20080301
  7. SYNAGIS [Suspect]
     Dates: start: 20080401, end: 20080401
  8. XOPENEX [Concomitant]
  9. PULMICORT [Concomitant]
  10. QVAR IN OPTI-CHAMBER (BECLOMETASONE DIPROPIONATE) [Concomitant]
  11. ZANTAC [Concomitant]

REACTIONS (5)
  - BRONCHIOLITIS [None]
  - BRONCHITIS [None]
  - BRONCHOSPASM [None]
  - DISEASE RECURRENCE [None]
  - PERTUSSIS [None]
